FAERS Safety Report 17485598 (Version 1)
Quarter: 2020Q1

REPORT INFORMATION
  Report Type: Spontaneous
  Country: US (occurrence: US)
  Receive Date: 20200302
  Receipt Date: 20200302
  Transmission Date: 20200409
  Serious: No
  Sender: FDA-Public Use
  Company Number: US-SA-2020SA052745

PATIENT
  Age: 74 Year
  Sex: Female

DRUGS (1)
  1. LANTUS SOLOSTAR [Suspect]
     Active Substance: INSULIN GLARGINE
     Indication: TYPE 2 DIABETES MELLITUS
     Dosage: 20 IU, HS
     Route: 065
     Dates: start: 2018

REACTIONS (5)
  - Dyspnoea [Unknown]
  - Asthma [Unknown]
  - Rash [Unknown]
  - Product dose omission [Unknown]
  - Rash pruritic [Unknown]

NARRATIVE: CASE EVENT DATE: 201909
